FAERS Safety Report 22537654 (Version 2)
Quarter: 2023Q2

REPORT INFORMATION
  Report Type: Spontaneous
  Country: US (occurrence: US)
  Receive Date: 20230608
  Receipt Date: 20230609
  Transmission Date: 20230721
  Serious: No
  Sender: FDA-Public Use
  Company Number: US-PFIZER INC-2021284200

PATIENT
  Age: 65 Year
  Sex: Female
  Weight: 86.168 kg

DRUGS (2)
  1. PREMARIN [Suspect]
     Active Substance: ESTROGENS, CONJUGATED
     Indication: Hot flush
     Dosage: 1 AND 1/2 3 DAYS THAN 1 AND SO ON
  2. PREMARIN [Suspect]
     Active Substance: ESTROGENS, CONJUGATED
     Dosage: UNK (0.625)

REACTIONS (4)
  - Intentional product misuse [Unknown]
  - Product dispensing error [Unknown]
  - Product prescribing error [Unknown]
  - Hypoacusis [Unknown]
